FAERS Safety Report 9760689 (Version 1)
Quarter: 2013Q4

REPORT INFORMATION
  Report Type: Spontaneous
  Country: US (occurrence: US)
  Receive Date: 20131216
  Receipt Date: 20131216
  Transmission Date: 20140711
  Serious: No
  Sender: FDA-Public Use
  Company Number: US-BIOGENIDEC-2013BI101103

PATIENT
  Age: 71 Year
  Sex: Female

DRUGS (13)
  1. TECFIDERA [Suspect]
     Indication: MULTIPLE SCLEROSIS
     Route: 048
     Dates: start: 201307, end: 201308
  2. BACLOFEN [Concomitant]
  3. FLUTICASONE [Concomitant]
  4. PRAMIPEXOLE [Concomitant]
  5. AMPYRA [Concomitant]
  6. MIRAPLEX [Concomitant]
  7. VITAMIN D [Concomitant]
  8. SINGULAIR [Concomitant]
  9. PREMARIN [Concomitant]
  10. BUDESONIDE [Concomitant]
  11. CALCIUM + D [Concomitant]
  12. GLUCOSE/CHOND [Concomitant]
  13. VITAMIN C [Concomitant]

REACTIONS (1)
  - Muscle spasticity [Recovered/Resolved]
